FAERS Safety Report 17940353 (Version 1)
Quarter: 2020Q2

REPORT INFORMATION
  Report Type: Spontaneous
  Country: CA (occurrence: CA)
  Receive Date: 20200625
  Receipt Date: 20200625
  Transmission Date: 20200714
  Serious: Yes (Other)
  Sender: FDA-Public Use
  Company Number: CA-SA-2017SA029770

PATIENT

DRUGS (9)
  1. REMICADE [Suspect]
     Active Substance: INFLIXIMAB
     Dosage: UNK UNK,UNK
     Route: 065
  2. SODIUM AUROTHIOMALATE [Suspect]
     Active Substance: GOLD SODIUM THIOMALATE
     Dosage: UNK UNK,UNK
     Route: 065
  3. HUMIRA [Suspect]
     Active Substance: ADALIMUMAB
     Indication: RHEUMATOID ARTHRITIS
     Dosage: UNK UNK,UNK
     Route: 058
  4. SIMPONI [Suspect]
     Active Substance: GOLIMUMAB
     Dosage: UNK UNK,UNK
     Route: 065
  5. ACTEMRA [Suspect]
     Active Substance: TOCILIZUMAB
     Dosage: UNK UNK,UNK
     Route: 065
  6. PREDNISONE. [Suspect]
     Active Substance: PREDNISONE
     Dosage: 20 MG,QD
     Route: 048
  7. ARAVA [Suspect]
     Active Substance: LEFLUNOMIDE
     Dosage: UNK UNK,UNK
     Route: 065
  8. ORENCIA [Suspect]
     Active Substance: ABATACEPT
     Dosage: UNK UNK,UNK
     Route: 065
  9. RITUXAN [Suspect]
     Active Substance: RITUXIMAB
     Dosage: UNK UNK,UNK
     Route: 065

REACTIONS (2)
  - Drug ineffective [Unknown]
  - Rheumatoid arthritis [Unknown]
